FAERS Safety Report 4474380-5 (Version None)
Quarter: 2004Q4

REPORT INFORMATION
  Report Type: 
  Country: None (occurrence: None)
  Receive Date: 20041012
  Receipt Date: 20040929
  Transmission Date: 20050328
  Serious: Yes (Hospitalization, Other)
  Sender: FDA-Public Use
  Company Number: 2004050515

PATIENT
  Age: 33 Year
  Sex: Male

DRUGS (1)
  1. VIAGRA [Suspect]
     Indication: ILL-DEFINED DISORDER
     Dosage: 2400 MG (100 MG, 1 IN 1 D), ORAL
     Route: 048
     Dates: start: 20040711, end: 20040711

REACTIONS (7)
  - COLOUR BLINDNESS [None]
  - OPTIC NEURITIS [None]
  - OVERDOSE [None]
  - PAPILLOEDEMA [None]
  - PHOTOPHOBIA [None]
  - RETINAL VASCULAR DISORDER [None]
  - SCOTOMA [None]
